FAERS Safety Report 23062162 (Version 1)
Quarter: 2023Q4

REPORT INFORMATION
  Report Type: Spontaneous
  Country: US (occurrence: US)
  Receive Date: 20231013
  Receipt Date: 20231013
  Transmission Date: 20240110
  Serious: Yes (Other)
  Sender: FDA-Public Use
  Company Number: US-AMGEN-USASP2023180943

PATIENT
  Age: 56 Year
  Sex: Female

DRUGS (3)
  1. FILGRASTIM [Suspect]
     Active Substance: FILGRASTIM
     Indication: Toxicity to various agents
     Dosage: UNK
     Route: 065
  2. FILGRASTIM [Suspect]
     Active Substance: FILGRASTIM
     Indication: Off label use
  3. ACETYLCYSTEINE [Concomitant]
     Active Substance: ACETYLCYSTEINE
     Indication: Toxicity to various agents
     Dosage: UNK

REACTIONS (6)
  - Thoracic vertebral fracture [Recovering/Resolving]
  - Lumbar vertebral fracture [Recovering/Resolving]
  - Muscular weakness [Recovering/Resolving]
  - Leukocytosis [Recovering/Resolving]
  - Alopecia [Recovering/Resolving]
  - Off label use [Unknown]
